FAERS Safety Report 8230799-8 (Version None)
Quarter: 2012Q1

REPORT INFORMATION
  Report Type: 
  Country: None (occurrence: None)
  Receive Date: 20120322
  Receipt Date: 20120322
  Transmission Date: 20120608
  Serious: Yes (Hospitalization)
  Sender: FDA-Public Use
  Company Number: None

PATIENT
  Sex: Female
  Weight: 82.3 kg

DRUGS (2)
  1. CARBOPLATIN [Suspect]
     Dosage: 445 MG
  2. PACLITAXEL [Suspect]
     Dosage: 330 MG

REACTIONS (7)
  - MYALGIA [None]
  - EATING DISORDER [None]
  - VOMITING [None]
  - ABDOMINAL PAIN [None]
  - NAUSEA [None]
  - BONE PAIN [None]
  - CONSTIPATION [None]
